FAERS Safety Report 5745497-X (Version None)
Quarter: 2008Q2

REPORT INFORMATION
  Report Type: 
  Country: None (occurrence: None)
  Receive Date: 20080521
  Receipt Date: 20080509
  Transmission Date: 20081010
  Serious: Yes (Hospitalization)
  Sender: FDA-Public Use
  Company Number: ES-ELI_LILLY_AND_COMPANY-ES200805002054

PATIENT
  Age: 54 Year
  Sex: Female

DRUGS (5)
  1. CYMBALTA [Suspect]
     Indication: DEPRESSION
     Dosage: 60 MG, UNKNOWN
     Route: 048
     Dates: start: 20070702, end: 20070725
  2. ACETENSIL [Concomitant]
     Dosage: 20 MG, UNKNOWN
     Route: 048
     Dates: start: 20040101
  3. EPOGEN [Concomitant]
     Dosage: UNK, UNKNOWN
     Route: 065
     Dates: start: 20040101
  4. BOREA [Concomitant]
     Indication: ASTHENIA
     Dosage: 160 MG, UNKNOWN
     Route: 048
     Dates: start: 20070702, end: 20070725
  5. LYRICA [Concomitant]
     Indication: PAIN
     Dosage: 75 MG, UNKNOWN
     Route: 048
     Dates: start: 20070702, end: 20070803

REACTIONS (3)
  - DIZZINESS [None]
  - HEPATIC ENZYME INCREASED [None]
  - VOMITING [None]
